FAERS Safety Report 9815664 (Version 2)
Quarter: 2014Q1

REPORT INFORMATION
  Report Type: Spontaneous
  Country: US (occurrence: US)
  Receive Date: 20140114
  Receipt Date: 20140218
  Transmission Date: 20141002
  Serious: No
  Sender: FDA-Public Use
  Company Number: US-009507513-1401USA005304

PATIENT
  Age: 21 Year
  Sex: Female
  Weight: 75.28 kg

DRUGS (1)
  1. NEXPLANON [Suspect]
     Indication: CONTRACEPTION
     Dosage: 1 DF, 1 ROD ONCE
     Route: 059
     Dates: start: 20140102, end: 20140113

REACTIONS (5)
  - Hypersensitivity [Recovered/Resolved]
  - Implant site erythema [Recovered/Resolved]
  - Implant site pruritus [Recovered/Resolved]
  - Implant site rash [Recovered/Resolved]
  - Implant site warmth [Recovered/Resolved]
